FAERS Safety Report 16482953 (Version 1)
Quarter: 2019Q2

REPORT INFORMATION
  Report Type: Report from Study
  Country: US (occurrence: US)
  Receive Date: 20190627
  Receipt Date: 20190627
  Transmission Date: 20190711
  Serious: Yes (Other)
  Sender: FDA-Public Use
  Company Number: US-TEVA-2019-US-1066320

PATIENT
  Sex: Female

DRUGS (3)
  1. AUSTEDO [Suspect]
     Active Substance: DEUTETRABENAZINE
     Dosage: 48 MILLIGRAM DAILY; TWO 12 MG TABLETS
     Route: 048
     Dates: end: 201902
  2. AUSTEDO [Suspect]
     Active Substance: DEUTETRABENAZINE
     Dosage: 42 MILLIGRAM DAILY; 9 + 12 MG TABLETS
     Route: 048
  3. AUSTEDO [Suspect]
     Active Substance: DEUTETRABENAZINE
     Indication: HUNTINGTON^S DISEASE
     Dosage: TITRATING PATIENT
     Route: 048
     Dates: start: 201811

REACTIONS (5)
  - Urinary tract infection [Recovered/Resolved]
  - Hypersomnia [Unknown]
  - Suicidal ideation [Unknown]
  - Feeling abnormal [Unknown]
  - Cystitis [Recovered/Resolved]
